FAERS Safety Report 9025302 (Version 2)
Quarter: 2013Q1

REPORT INFORMATION
  Report Type: Spontaneous
  Country: US (occurrence: US)
  Receive Date: 20130122
  Receipt Date: 20130214
  Transmission Date: 20140127
  Serious: No
  Sender: FDA-Public Use
  Company Number: US-B.I. PHARMACEUTICALS,INC./RIDGEFIELD-2013-BI-01200BP

PATIENT
  Age: 77 Year
  Sex: Female
  Weight: 56.7 kg

DRUGS (8)
  1. COMBIVENT [Suspect]
     Indication: CHRONIC OBSTRUCTIVE PULMONARY DISEASE
     Route: 055
     Dates: start: 20110325
  2. COMBIVENT [Suspect]
     Indication: BRONCHITIS CHRONIC
  3. CARDIZEM [Concomitant]
     Indication: HYPERTENSION
     Dosage: 90 MG
     Route: 048
  4. VALIUM [Concomitant]
     Indication: HYPERTENSION
     Dosage: 20 MG
     Route: 048
  5. BYSTOLIC [Concomitant]
     Indication: HYPERTENSION
     Dates: start: 20110919
  6. ASPIRIN [Concomitant]
     Indication: ROUTINE HEALTH MAINTENANCE
     Dates: start: 20110422
  7. DILTIAZEM [Concomitant]
     Indication: HYPERTENSION
     Dates: start: 20110325
  8. VASOTEC [Concomitant]
     Indication: HYPERTENSION
     Dates: start: 20110325

REACTIONS (3)
  - Blood pressure increased [Recovered/Resolved]
  - Heart rate increased [Recovered/Resolved]
  - Feeling abnormal [Recovered/Resolved]
